FAERS Safety Report 4746805-9 (Version None)
Quarter: 2005Q3

REPORT INFORMATION
  Report Type: 
  Country: None (occurrence: None)
  Receive Date: 20050815
  Receipt Date: 20050728
  Transmission Date: 20060218
  Serious: Yes (Other)
  Sender: FDA-Public Use
  Company Number: USA0507104015

PATIENT
  Age: 43 Year
  Sex: Female

DRUGS (2)
  1. HUMALOG [Suspect]
     Indication: DIABETES MELLITUS
     Dates: start: 19960101, end: 20010101
  2. HUMULIN N [Suspect]
     Indication: DIABETES MELLITUS
     Dates: start: 19960101, end: 20010101

REACTIONS (4)
  - IMPAIRED GASTRIC EMPTYING [None]
  - KETOSIS [None]
  - VOMITING [None]
  - WEIGHT DECREASED [None]
